FAERS Safety Report 4703568-0 (Version None)
Quarter: 2005Q2

REPORT INFORMATION
  Report Type: 
  Country: None (occurrence: None)
  Receive Date: 20050630
  Receipt Date: 20050627
  Transmission Date: 20051028
  Serious: Yes (Hospitalization)
  Sender: FDA-Public Use
  Company Number: PHRM2005FR01971

PATIENT
  Age: 87 Year
  Sex: Female
  Weight: 50 kg

DRUGS (3)
  1. EXELON [Suspect]
     Dosage: 3 MG, BID
     Route: 048
  2. DEROXAT [Suspect]
     Dosage: 20 MG, QD
     Route: 048
  3. TARDYFERON [Concomitant]
     Route: 048

REACTIONS (6)
  - ABDOMINAL PAIN [None]
  - ABDOMINAL RIGIDITY [None]
  - BLADDER DISTENSION [None]
  - FAECES DISCOLOURED [None]
  - HYPONATRAEMIA [None]
  - VOMITING [None]
